FAERS Safety Report 7530855-3 (Version None)
Quarter: 2011Q2

REPORT INFORMATION
  Report Type: 
  Country: None (occurrence: None)
  Receive Date: 20110608
  Receipt Date: 20110606
  Transmission Date: 20111010
  Serious: Yes (Death, Hospitalization)
  Sender: FDA-Public Use
  Company Number: US-BRISTOL-MYERS SQUIBB COMPANY-15032469

PATIENT
  Age: 75 Year
  Sex: Male
  Weight: 75 kg

DRUGS (11)
  1. INSULIN [Concomitant]
     Route: 042
  2. ERBITUX [Suspect]
     Indication: OESOPHAGEAL ADENOCARCINOMA
     Dosage: LAST ADMIN DATE:15MAR10,CETUXIMAB 796MG+497MG=1293MG
     Dates: start: 20100305
  3. ZOSYN [Concomitant]
     Route: 042
  4. METOPROLOL SUCCINATE [Concomitant]
     Route: 042
  5. FLUCONAZOLE [Concomitant]
     Route: 042
  6. HEPARIN SODIUM [Concomitant]
     Route: 042
  7. HYDRALAZINE HCL [Concomitant]
     Route: 042
  8. CISPLATIN [Suspect]
     Indication: OESOPHAGEAL ADENOCARCINOMA
     Dosage: LAST DOSE:15MAR10
     Dates: start: 20100305
  9. PROTONIX [Concomitant]
     Route: 042
  10. TAXOL [Suspect]
     Indication: OESOPHAGEAL ADENOCARCINOMA
     Dosage: LAST DOSE:15MAR10
     Dates: start: 20100305
  11. LABETALOL HCL [Concomitant]
     Route: 042

REACTIONS (7)
  - LUNG INFECTION [None]
  - DUODENAL ULCER PERFORATION [None]
  - CONFUSIONAL STATE [None]
  - ABDOMINAL SEPSIS [None]
  - PERIPHERAL ISCHAEMIA [None]
  - DEHYDRATION [None]
  - RENAL FAILURE [None]
